FAERS Safety Report 9163813 (Version 1)
Quarter: 2013Q1

REPORT INFORMATION
  Report Type: Spontaneous
  Country: FR (occurrence: FR)
  Receive Date: 20130314
  Receipt Date: 20130314
  Transmission Date: 20140127
  Serious: Yes (Hospitalization)
  Sender: FDA-Public Use
  Company Number: FR-PFIZER INC-2003005567

PATIENT
  Age: 60 Year
  Sex: Male

DRUGS (2)
  1. NEURONTIN [Suspect]
     Indication: NEURALGIA
     Dosage: 1600 MG, DAILY
     Route: 048
     Dates: start: 20020903, end: 20021212
  2. RIVOTRIL [Concomitant]
     Indication: NEURALGIA
     Dosage: 0.20 ML, DAILY
     Route: 048
     Dates: start: 20020903, end: 20021212

REACTIONS (1)
  - Hepatitis cholestatic [Recovered/Resolved]
